FAERS Safety Report 5190461-5 (Version None)
Quarter: 2006Q4

REPORT INFORMATION
  Report Type: 
  Country: None (occurrence: None)
  Receive Date: 20061222
  Receipt Date: 20061215
  Transmission Date: 20070319
  Serious: Yes (Other)
  Sender: FDA-Public Use
  Company Number: GB-ELI_LILLY_AND_COMPANY-GB200612002898

PATIENT
  Age: 52 Year
  Sex: Female

DRUGS (3)
  1. CYMBALTA [Suspect]
     Dosage: 60 MG, UNK
     Route: 048
     Dates: start: 20050401
  2. CLORAL BETAINE [Concomitant]
     Dosage: 1414 MG, UNK
     Route: 048
  3. LORAZEPAM [Concomitant]
     Dosage: 1 MG, UNK
     Route: 048
     Dates: end: 20061117

REACTIONS (1)
  - HYPERTENSION [None]
